FAERS Safety Report 13179704 (Version 1)
Quarter: 2017Q1

REPORT INFORMATION
  Report Type: Spontaneous
  Country: US (occurrence: US)
  Receive Date: 20170202
  Receipt Date: 20170202
  Transmission Date: 20170428
  Serious: No
  Sender: FDA-Public Use
  Company Number: None

PATIENT
  Age: 65 Year
  Sex: Male
  Weight: 95.48 kg

DRUGS (6)
  1. BENDEKA [Suspect]
     Active Substance: BENDAMUSTINE HYDROCHLORIDE
     Indication: NON-HODGKIN^S LYMPHOMA
     Dosage: ?          OTHER FREQUENCY:DAILY FOR 2 DAYS;?
     Route: 042
     Dates: start: 20161114, end: 20161115
  2. NORMAL SALINE [Concomitant]
     Active Substance: SODIUM CHLORIDE
  3. NEULASTA [Concomitant]
     Active Substance: PEGFILGRASTIM
  4. DECADRON [Concomitant]
     Active Substance: DEXAMETHASONE
  5. HEPARIN [Concomitant]
     Active Substance: HEPARIN SODIUM
  6. ALOXI [Concomitant]
     Active Substance: PALONOSETRON HYDROCHLORIDE

REACTIONS (8)
  - Oropharyngeal pain [None]
  - Depression [None]
  - Fatigue [None]
  - Malaise [None]
  - Eating disorder [None]
  - Hypoaesthesia oral [None]
  - Musculoskeletal stiffness [None]
  - Nausea [None]

NARRATIVE: CASE EVENT DATE: 20161114
